FAERS Safety Report 10246189 (Version 1)
Quarter: 2014Q2

REPORT INFORMATION
  Report Type: Spontaneous
  Country: US (occurrence: None)
  Receive Date: 20140617
  Receipt Date: 20140617
  Transmission Date: 20141212
  Serious: Yes (Disabling)
  Sender: FDA-Public Use
  Company Number: None

PATIENT
  Age: 35 Year
  Sex: Female
  Weight: 52.16 kg

DRUGS (1)
  1. CLARITHROMYCIN [Suspect]
     Indication: PRODUCTIVE COUGH
     Route: 048
     Dates: start: 20140608, end: 20140614

REACTIONS (6)
  - Dizziness [None]
  - Sleep disorder [None]
  - Insomnia [None]
  - Irritability [None]
  - Disturbance in attention [None]
  - Fatigue [None]
